FAERS Safety Report 7259342-7 (Version None)
Quarter: 2011Q1

REPORT INFORMATION
  Report Type: 
  Country: None (occurrence: None)
  Receive Date: 20110129
  Receipt Date: 20100823
  Transmission Date: 20110831
  Serious: No
  Sender: FDA-Public Use
  Company Number: US-ABBOTT-10P-163-0665804-00

PATIENT
  Age: 65 Year
  Sex: Male

DRUGS (12)
  1. LOPRESSOR [Concomitant]
     Indication: BLOOD CHOLESTEROL
  2. KLONOPIN [Concomitant]
     Indication: INSOMNIA
     Dosage: 1MG PILL,1/2 TAB AT AM, WHOLE TAB AT PM
  3. PENTASA [Concomitant]
     Indication: CROHN'S DISEASE
  4. KLONOPIN [Concomitant]
     Indication: TREMOR
  5. PRILOSEC [Concomitant]
     Indication: GASTROOESOPHAGEAL REFLUX DISEASE
  6. SYNTHROID [Concomitant]
     Indication: HYPOTHYROIDISM
  7. LOMOTIL [Concomitant]
     Indication: DIARRHOEA
  8. HUMIRA [Suspect]
     Indication: CROHN'S DISEASE
     Dates: start: 20100601
  9. SPIRIVA [Concomitant]
     Indication: EMPHYSEMA
  10. LISINOPRIL [Concomitant]
     Indication: BLOOD PRESSURE INCREASED
  11. LOMOTIL [Concomitant]
     Indication: CROHN'S DISEASE
  12. ZOCOR [Concomitant]
     Indication: BLOOD CHOLESTEROL INCREASED

REACTIONS (2)
  - INJECTION SITE ERYTHEMA [None]
  - DRUG INEFFECTIVE [None]
